FAERS Safety Report 12881732 (Version 1)
Quarter: 2016Q4

REPORT INFORMATION
  Report Type: Spontaneous
  Country: US (occurrence: US)
  Receive Date: 20161025
  Receipt Date: 20161025
  Transmission Date: 20170207
  Serious: No
  Sender: FDA-Public Use
  Company Number: US-JNJFOC-20160930261

PATIENT
  Sex: Male
  Weight: 119.3 kg

DRUGS (6)
  1. DURAGESIC [Suspect]
     Active Substance: FENTANYL
     Indication: NEURALGIA
     Route: 062
     Dates: start: 200710
  2. TOPAMAX [Suspect]
     Active Substance: TOPIRAMATE
     Indication: NEURALGIA
     Route: 048
     Dates: start: 2006, end: 2014
  3. TOPAMAX [Suspect]
     Active Substance: TOPIRAMATE
     Indication: NEURALGIA
     Route: 048
     Dates: start: 2006
  4. DURAGESIC [Suspect]
     Active Substance: FENTANYL
     Indication: NEURALGIA
     Route: 062
     Dates: start: 2007
  5. DURAGESIC [Suspect]
     Active Substance: FENTANYL
     Indication: NEURALGIA
     Route: 062
     Dates: start: 2007
  6. DURAGESIC [Suspect]
     Active Substance: FENTANYL
     Indication: NEURALGIA
     Route: 062
     Dates: start: 2007

REACTIONS (5)
  - Product use issue [Unknown]
  - Drug dose omission [Unknown]
  - Off label use [Unknown]
  - Inadequate analgesia [Unknown]
  - Drug ineffective for unapproved indication [Unknown]

NARRATIVE: CASE EVENT DATE: 2006
